FAERS Safety Report 6554398-9 (Version None)
Quarter: 2010Q1

REPORT INFORMATION
  Report Type: 
  Country: None (occurrence: None)
  Receive Date: 20100125
  Receipt Date: 20100125
  Transmission Date: 20100710
  Serious: No
  Sender: FDA-Public Use
  Company Number: None

PATIENT
  Sex: Female
  Weight: 68.9 kg

DRUGS (4)
  1. MERCAPTOPURINE [Suspect]
     Dosage: 9100 MG
     Dates: end: 20091215
  2. METHOTREXATE [Suspect]
     Dosage: 310 MG
     Dates: end: 20091219
  3. PREDNISONE [Suspect]
     Dosage: 1050 MG
     Dates: end: 20091122
  4. VINCRISTINE SULFATE [Suspect]
     Dosage: 6 MG
     Dates: end: 20091214

REACTIONS (4)
  - COUGH [None]
  - DIZZINESS [None]
  - EPIGASTRIC DISCOMFORT [None]
  - HYPERBILIRUBINAEMIA [None]
